FAERS Safety Report 7045628-8 (Version None)
Quarter: 2010Q4

REPORT INFORMATION
  Report Type: 
  Country: None (occurrence: None)
  Receive Date: 20101014
  Receipt Date: 20101004
  Transmission Date: 20110411
  Serious: Yes (Death)
  Sender: FDA-Public Use
  Company Number: US-BAXTER-2010BH024912

PATIENT
  Age: 70 Year
  Sex: Male

DRUGS (2)
  1. DIANEAL [Suspect]
     Indication: PERITONEAL DIALYSIS
     Route: 033
     Dates: end: 20101002
  2. BLOOD THINNER [Suspect]
     Indication: CARDIAC DISORDER
     Route: 065

REACTIONS (2)
  - EPISTAXIS [None]
  - HAEMORRHAGE [None]
